FAERS Safety Report 15984618 (Version 1)
Quarter: 2019Q1

REPORT INFORMATION
  Report Type: Spontaneous
  Country: US (occurrence: US)
  Receive Date: 20190220
  Receipt Date: 20190220
  Transmission Date: 20190418
  Serious: No
  Sender: FDA-Public Use
  Company Number: US-THE MENTHOLATUM COMPANY-2062932

PATIENT
  Age: 23 Year

DRUGS (1)
  1. OXY SENSITIVE FACE WASH MAXIMUM SOOTHING [Suspect]
     Active Substance: BENZOYL PEROXIDE
     Indication: ACNE
     Route: 061
     Dates: start: 20190117, end: 20190117

REACTIONS (3)
  - Application site erythema [Recovered/Resolved]
  - Skin exfoliation [None]
  - Burning sensation [Recovered/Resolved]

NARRATIVE: CASE EVENT DATE: 20190117
